FAERS Safety Report 15401457 (Version 2)
Quarter: 2018Q3

REPORT INFORMATION
  Report Type: Report from Study
  Country: IT (occurrence: IT)
  Receive Date: 20180919
  Receipt Date: 20180924
  Transmission Date: 20181010
  Serious: Yes (Hospitalization)
  Sender: FDA-Public Use
  Company Number: IT-ACCORD-072507

PATIENT
  Age: 36 Year
  Sex: Male

DRUGS (6)
  1. PARACETAMOL [Suspect]
     Active Substance: ACETAMINOPHEN
     Route: 048
     Dates: start: 20180818, end: 20180818
  2. KETODOL [Suspect]
     Active Substance: KETOROLAC TROMETHAMINE
     Dosage: STRENGTH: 25 MG + 200 MG
  3. PREDNISONE. [Suspect]
     Active Substance: PREDNISONE
     Route: 048
     Dates: start: 20180818, end: 20180818
  4. ARIPIPRAZOLE. [Suspect]
     Active Substance: ARIPIPRAZOLE
     Route: 048
     Dates: start: 20180818, end: 20180818
  5. HALOPERIDOL. [Suspect]
     Active Substance: HALOPERIDOL
     Route: 048
     Dates: start: 20180818, end: 20180818
  6. DICLOFENAC [Suspect]
     Active Substance: DICLOFENAC

REACTIONS (4)
  - Drug abuse [Unknown]
  - Bradykinesia [Unknown]
  - Suicide attempt [Unknown]
  - Sopor [Unknown]

NARRATIVE: CASE EVENT DATE: 20180818
